FAERS Safety Report 10082949 (Version 3)
Quarter: 2014Q2

REPORT INFORMATION
  Report Type: Spontaneous
  Country: CA (occurrence: CA)
  Receive Date: 20140417
  Receipt Date: 20140507
  Transmission Date: 20141212
  Serious: Yes (Other)
  Sender: FDA-Public Use
  Company Number: CA-BEH-2013035975

PATIENT
  Age: 62 Year
  Sex: Female

DRUGS (5)
  1. PRIVIGEN [Suspect]
     Indication: HAEMOLYSIS
     Route: 042
     Dates: start: 20130507, end: 20130507
  2. PRIVIGEN [Suspect]
     Dates: start: 19981122
  3. PRIVIGEN [Suspect]
     Indication: PURPURA
     Dates: start: 19930902
  4. PRIVIGEN [Suspect]
     Dates: start: 19930821
  5. AGGRENOX [Concomitant]
     Dates: end: 20130430

REACTIONS (8)
  - Hypoxia [Recovered/Resolved]
  - Blood pressure increased [Recovered/Resolved]
  - Transfusion reaction [Recovered/Resolved]
  - Tachycardia [Recovered/Resolved]
  - Chills [Recovered/Resolved]
  - Nausea [Recovered/Resolved]
  - Malaise [Recovered/Resolved]
  - Hyperhidrosis [Recovered/Resolved]
